FAERS Safety Report 20813485 (Version 1)
Quarter: 2022Q2

REPORT INFORMATION
  Report Type: Spontaneous
  Country: US (occurrence: None)
  Receive Date: 20220510
  Receipt Date: 20220510
  Transmission Date: 20220720
  Serious: Yes (Death)
  Sender: FDA-Public Use
  Company Number: None

PATIENT
  Age: 80 Year
  Sex: Female
  Weight: 87.54 kg

DRUGS (15)
  1. KEYTRUDA [Suspect]
     Active Substance: PEMBROLIZUMAB
     Indication: Endometrial cancer
     Dosage: OTHER FREQUENCY : Q3WKS;?
     Route: 042
  2. LENVIMA [Concomitant]
     Active Substance: LENVATINIB
  3. ZARXIO [Concomitant]
     Active Substance: FILGRASTIM-SNDZ
  4. ACETAZOLAMIDE [Concomitant]
     Active Substance: ACETAZOLAMIDE
  5. ADVAIR HFA [Concomitant]
     Active Substance: FLUTICASONE PROPIONATE\SALMETEROL XINAFOATE
  6. FERROUS SULFATE [Concomitant]
     Active Substance: FERROUS SULFATE
  7. VITAMINS [Concomitant]
     Active Substance: VITAMINS
  8. METFORMIN [Concomitant]
     Active Substance: METFORMIN HYDROCHLORIDE
  9. METOPROLOL [Concomitant]
     Active Substance: METOPROLOL
  10. PANTOPRAZOLE [Concomitant]
     Active Substance: PANTOPRAZOLE
  11. POTASSIUM [Concomitant]
     Active Substance: POTASSIUM
  12. PROCRIT [Concomitant]
     Active Substance: ERYTHROPOIETIN
  13. SIMVASTATIN [Concomitant]
     Active Substance: SIMVASTATIN
  14. TIMOLOL [Concomitant]
     Active Substance: TIMOLOL
  15. VITAMIN B12 [Concomitant]
     Active Substance: CYANOCOBALAMIN

REACTIONS (1)
  - Death [None]

NARRATIVE: CASE EVENT DATE: 20220508
